FAERS Safety Report 14849988 (Version 1)
Quarter: 2018Q2

REPORT INFORMATION
  Report Type: Spontaneous
  Country: SA (occurrence: SA)
  Receive Date: 20180504
  Receipt Date: 20180504
  Transmission Date: 20180711
  Serious: Yes (Hospitalization)
  Sender: FDA-Public Use
  Company Number: SA-TEVA-2018-SA-888902

PATIENT
  Age: 66 Year
  Sex: Male

DRUGS (2)
  1. RITUXIMAB. [Concomitant]
     Active Substance: RITUXIMAB
     Indication: CHRONIC LYMPHOCYTIC LEUKAEMIA
     Route: 065
  2. RIBOMUSTIN [Suspect]
     Active Substance: BENDAMUSTINE HYDROCHLORIDE
     Indication: CHRONIC LYMPHOCYTIC LEUKAEMIA
     Route: 042

REACTIONS (4)
  - Leukopenia [Unknown]
  - Blood uric acid increased [Unknown]
  - Prescribed underdose [Unknown]
  - Blood creatinine increased [Unknown]
